FAERS Safety Report 5419654-6 (Version None)
Quarter: 2007Q3

REPORT INFORMATION
  Report Type: 
  Country: None (occurrence: None)
  Receive Date: 20070820
  Receipt Date: 20070810
  Transmission Date: 20080115
  Serious: Yes (Hospitalization)
  Sender: FDA-Public Use
  Company Number: PHHO2007RU13344

PATIENT
  Age: 70 Year
  Sex: Female
  Weight: 89.6 kg

DRUGS (4)
  1. LMF237 VS VILDAGLIPTIN VS METFORMIN [Suspect]
     Indication: TYPE 2 DIABETES MELLITUS
     Dosage: CODE NOT BROKEN
     Route: 048
     Dates: start: 20070723
  2. ASPIRIN [Concomitant]
  3. METOPROLOL SUCCINATE [Concomitant]
  4. FOSINOPRIL SODIUM [Concomitant]

REACTIONS (2)
  - ANGINA PECTORIS [None]
  - ANGINA UNSTABLE [None]
